FAERS Safety Report 5240173-4 (Version None)
Quarter: 2007Q1

REPORT INFORMATION
  Report Type: 
  Country: None (occurrence: None)
  Receive Date: 20070218
  Receipt Date: 20070213
  Transmission Date: 20070707
  Serious: Yes (Other)
  Sender: FDA-Public Use
  Company Number: US-RB-3477-2006

PATIENT
  Sex: Female
  Weight: 46.35 kg

DRUGS (3)
  1. SUBOXONE [Suspect]
     Dosage: CUMULATIVE DOSE:  88  MG
     Route: 060
     Dates: start: 20060601
  2. SUBOXONE [Suspect]
     Dosage: CUMULATIVE DOSE:  960  MG
     Route: 060
     Dates: start: 20060102, end: 20060531
  3. SUBOXONE [Suspect]
     Dosage: PATIENT REPORTS BETWEEN 12-20 MG QD
     Route: 060
     Dates: start: 20051116, end: 20060101

REACTIONS (1)
  - PREGNANCY [None]
